FAERS Safety Report 8803332 (Version 2)
Quarter: 2012Q4

REPORT INFORMATION
  Report Type: 
  Country: US (occurrence: US)
  Receive Date: 20120924
  Receipt Date: 20121010
  Transmission Date: 20130627
  Serious: Yes (Hospitalization)
  Sender: FDA-Public Use
  Company Number: US-CELGENEUS-163-21880-12092249

PATIENT
  Age: 63 Year
  Sex: Male

DRUGS (8)
  1. REVLIMID [Suspect]
     Indication: MULTIPLE MYELOMA WITHOUT MENTION OF REMISSION
     Dosage: 15 Milligram
     Route: 048
     Dates: start: 20101221
  2. REVLIMID [Suspect]
     Dosage: 10 Milligram
     Route: 048
     Dates: start: 201107
  3. REVLIMID [Suspect]
     Dosage: 5 Milligram
     Route: 048
     Dates: start: 201204
  4. HUMULIN [Concomitant]
     Indication: DRUG USE FOR UNKNOWN INDICATION
     Dosage: 20 units
     Route: 065
     Dates: start: 201106
  5. LASIX [Concomitant]
     Indication: DRUG USE FOR UNKNOWN INDICATION
     Route: 048
     Dates: start: 201105
  6. ASA [Concomitant]
     Indication: DRUG USE FOR UNKNOWN INDICATION
     Route: 048
     Dates: start: 201011
  7. ASA [Concomitant]
     Route: 048
     Dates: start: 201011
  8. ASA [Concomitant]
     Route: 048
     Dates: start: 201011

REACTIONS (3)
  - Bile duct stone [Recovered/Resolved]
  - Cholangitis [Recovered/Resolved]
  - Cholecystitis [Recovered/Resolved]
